FAERS Safety Report 16810343 (Version 6)
Quarter: 2021Q1

REPORT INFORMATION
  Report Type: Spontaneous
  Country: US (occurrence: US)
  Receive Date: 20190916
  Receipt Date: 20210114
  Transmission Date: 20210419
  Serious: No
  Sender: FDA-Public Use
  Company Number: US-PFIZER INC-2019399093

PATIENT
  Age: 76 Year
  Sex: Female

DRUGS (2)
  1. LYRICA [Suspect]
     Active Substance: PREGABALIN
     Dosage: 150 MG
  2. LYRICA [Suspect]
     Active Substance: PREGABALIN
     Dosage: 25 G, 1X/DAY
     Route: 048

REACTIONS (5)
  - Pain [Unknown]
  - Illness [Unknown]
  - Prescribed overdose [Unknown]
  - Somnolence [Unknown]
  - Hypoacusis [Unknown]
